FAERS Safety Report 10034443 (Version 1)
Quarter: 2014Q1

REPORT INFORMATION
  Report Type: Spontaneous
  Country: US (occurrence: None)
  Receive Date: 20140324
  Receipt Date: 20140324
  Transmission Date: 20141002
  Serious: Yes (Hospitalization)
  Sender: FDA-Public Use
  Company Number: None

PATIENT
  Age: 66 Year
  Sex: Male
  Weight: 81.65 kg

DRUGS (1)
  1. WP THYROID 65 MG [Suspect]
     Indication: HYPOTHYROIDISM
     Route: 048
     Dates: start: 20140321, end: 20140322

REACTIONS (3)
  - Tension headache [None]
  - Eye movement disorder [None]
  - Vertigo [None]
